FAERS Safety Report 6737723-5 (Version None)
Quarter: 2010Q2

REPORT INFORMATION
  Report Type: 
  Country: None (occurrence: None)
  Receive Date: 20100524
  Receipt Date: 20100512
  Transmission Date: 20101027
  Serious: Yes (Hospitalization, Other)
  Sender: FDA-Public Use
  Company Number: PHHY2010JP30762

PATIENT
  Age: 76 Year
  Sex: Male

DRUGS (4)
  1. LAMISIL [Suspect]
     Dosage: UNK
     Route: 048
     Dates: start: 20090912, end: 20091128
  2. AMLODIPINE BESYLATE [Concomitant]
     Dosage: UNK
     Route: 048
  3. FLUVASTATIN [Concomitant]
     Dosage: UNK
     Route: 048
  4. MICARDIS [Concomitant]
     Dosage: UNK
     Route: 048

REACTIONS (3)
  - HAEMATEMESIS [None]
  - NAIL GROWTH ABNORMAL [None]
  - SMALL INTESTINAL HAEMORRHAGE [None]
